FAERS Safety Report 5604222-3 (Version None)
Quarter: 2008Q1

REPORT INFORMATION
  Report Type: 
  Country: None (occurrence: None)
  Receive Date: 20080128
  Receipt Date: 20080114
  Transmission Date: 20080703
  Serious: Yes (Hospitalization)
  Sender: FDA-Public Use
  Company Number: DE-AMGEN-UK260829

PATIENT
  Sex: Female

DRUGS (10)
  1. KINERET [Suspect]
     Indication: RHEUMATOID ARTHRITIS
     Route: 058
     Dates: start: 20031201
  2. HUMIRA [Concomitant]
  3. LEFLUNOMIDE [Concomitant]
  4. AZATHIOPRINE [Concomitant]
  5. PREDNISOLONE [Concomitant]
  6. CALCIMAGON [Concomitant]
  7. FOSAMAX [Concomitant]
     Route: 048
  8. LYRICA [Concomitant]
  9. POTASSIUM CHLORIDE [Concomitant]
  10. HYDROXYCHLOROQUINE [Concomitant]
     Dates: end: 19970101

REACTIONS (8)
  - ESCHERICHIA SEPSIS [None]
  - GASTRIC ULCER [None]
  - GASTRITIS [None]
  - HAEMORRHAGIC ANAEMIA [None]
  - HYPOKALAEMIA [None]
  - PARAESTHESIA [None]
  - PYREXIA [None]
  - URINARY TRACT INFECTION [None]
